FAERS Safety Report 10161661 (Version 1)
Quarter: 2014Q2

REPORT INFORMATION
  Report Type: Report from Study
  Country: US (occurrence: US)
  Receive Date: 20140509
  Receipt Date: 20140509
  Transmission Date: 20141212
  Serious: Yes (Other)
  Sender: FDA-Public Use
  Company Number: US-ROCHE-1391883

PATIENT
  Sex: Female
  Weight: 57.66 kg

DRUGS (8)
  1. HERCEPTIN [Suspect]
     Indication: BREAST CANCER METASTATIC
     Route: 042
  2. LEXAPRO [Concomitant]
     Dosage: STARTED 7 YEARS AGO
     Route: 048
  3. XANAX [Concomitant]
     Dosage: STARTED 5 YEARS AGO
     Route: 048
  4. ALLEGRA [Concomitant]
     Dosage: STARTED 10 YEARS AGO
     Route: 048
  5. MUCINEX [Concomitant]
     Indication: HYPERSENSITIVITY
     Dosage: STARTED 3 YEARS AGO
     Route: 048
  6. MUCINEX [Concomitant]
     Indication: SINUSITIS
  7. OXYCODONE [Concomitant]
     Indication: PAIN
     Dosage: STARTED 7 YEARS AGO
     Route: 048
  8. OXYCONTIN [Concomitant]
     Indication: PAIN
     Route: 065

REACTIONS (5)
  - Metastases to thorax [Recovering/Resolving]
  - Vitreous adhesions [Recovering/Resolving]
  - Skin exfoliation [Not Recovered/Not Resolved]
  - Temperature intolerance [Unknown]
  - Fatigue [Unknown]
